FAERS Safety Report 10149356 (Version 1)
Quarter: 2014Q2

REPORT INFORMATION
  Report Type: Spontaneous
  Country: US (occurrence: US)
  Receive Date: 20140502
  Receipt Date: 20140502
  Transmission Date: 20141212
  Serious: No
  Sender: FDA-Public Use
  Company Number: US-TARO-2013P1019031

PATIENT
  Age: 75 Year
  Sex: Female
  Weight: 58.97 kg

DRUGS (5)
  1. TERCONAZOLE VAGINAL CREAM 0.8% [Suspect]
     Indication: FUNGAL INFECTION
     Route: 067
     Dates: start: 20130826, end: 20130826
  2. VITAMINS [Concomitant]
  3. SIMVASTATIN [Concomitant]
  4. XANAX [Concomitant]
  5. ALEVE [Concomitant]

REACTIONS (1)
  - Vulvovaginal burning sensation [Not Recovered/Not Resolved]
